FAERS Safety Report 17521836 (Version 1)
Quarter: 2020Q1

REPORT INFORMATION
  Report Type: Spontaneous
  Country: IN (occurrence: IN)
  Receive Date: 20200310
  Receipt Date: 20200310
  Transmission Date: 20200409
  Serious: Yes (Other)
  Sender: FDA-Public Use
  Company Number: NVSC2020IN041467

PATIENT
  Age: 62 Year
  Sex: Female

DRUGS (1)
  1. TRIAMCINOLONE ACETONIDE. [Suspect]
     Active Substance: TRIAMCINOLONE ACETONIDE
     Indication: INFLAMMATION
     Dosage: 40 MG/ML (0.5CC SUSPENSION IN SUBTENON^S SPACE)
     Route: 065

REACTIONS (2)
  - Keratitis fungal [Unknown]
  - Necrotising scleritis [Recovering/Resolving]
